FAERS Safety Report 7097040-3 (Version None)
Quarter: 2010Q4

REPORT INFORMATION
  Report Type: 
  Country: None (occurrence: None)
  Receive Date: 20101111
  Receipt Date: 20100415
  Transmission Date: 20110411
  Serious: No
  Sender: FDA-Public Use
  Company Number: US-KINGPHARMUSA00001-K201000462

PATIENT
  Sex: Male

DRUGS (9)
  1. EMBEDA [Suspect]
     Indication: BACK PAIN
     Dosage: 100 MG, UNK
     Route: 048
     Dates: start: 20100401, end: 20100415
  2. EMBEDA [Suspect]
     Indication: POST LAMINECTOMY SYNDROME
  3. EMBEDA [Suspect]
     Indication: LUMBAR RADICULOPATHY
  4. AMBIEN [Concomitant]
     Dosage: UNK
  5. OXYCODONE HCL [Concomitant]
     Dosage: UNK
  6. DAYPRO [Concomitant]
     Dosage: UNK
  7. DURAGESIC-100 [Concomitant]
     Dosage: UNK
  8. CLONAZEPAM [Concomitant]
     Dosage: UNK
  9. NORTRIPTYLINE [Concomitant]
     Dosage: UNK

REACTIONS (1)
  - INSOMNIA [None]
